FAERS Safety Report 4860514-7 (Version None)
Quarter: 2005Q4

REPORT INFORMATION
  Report Type: 
  Country: None (occurrence: None)
  Receive Date: 20051216
  Receipt Date: 20051202
  Transmission Date: 20060501
  Serious: Yes (Other)
  Sender: FDA-Public Use
  Company Number: US200512000566

PATIENT
  Age: 42 Year
  Sex: Female

DRUGS (1)
  1. CYMBALTA [Suspect]
     Dosage: SEE IMAGE
     Dates: start: 20050101, end: 20050101

REACTIONS (8)
  - BLOOD PRESSURE INCREASED [None]
  - DISTURBANCE IN ATTENTION [None]
  - FEELING ABNORMAL [None]
  - LIBIDO DECREASED [None]
  - LOSS OF EMPLOYMENT [None]
  - NEUROLOGICAL SYMPTOM [None]
  - NIGHTMARE [None]
  - PARAESTHESIA [None]
